FAERS Safety Report 9691993 (Version 2)
Quarter: 2015Q1

REPORT INFORMATION
  Report Type: Report from Study
  Country: SK (occurrence: SK)
  Receive Date: 20131118
  Receipt Date: 20150123
  Transmission Date: 20150721
  Serious: Yes (Hospitalization)
  Sender: FDA-Public Use
  Company Number: SK-BIOGENIDEC-2013BI108796

PATIENT
  Age: 35 Year
  Sex: Male

DRUGS (3)
  1. TYSABRI [Suspect]
     Active Substance: NATALIZUMAB
     Indication: RELAPSING-REMITTING MULTIPLE SCLEROSIS
     Route: 042
     Dates: start: 20110720, end: 20130722
  2. ACAMPROSATE [Concomitant]
     Active Substance: ACAMPROSATE
  3. TIAPRIDAL [Concomitant]
     Active Substance: TIAPRIDE HYDROCHLORIDE
     Route: 048

REACTIONS (2)
  - Multiple sclerosis relapse [Not Recovered/Not Resolved]
  - Wernicke-Korsakoff syndrome [Not Recovered/Not Resolved]

NARRATIVE: CASE EVENT DATE: 20130725
